FAERS Safety Report 9215448 (Version 1)
Quarter: 2013Q2

REPORT INFORMATION
  Report Type: Spontaneous
  Country: US (occurrence: US)
  Receive Date: 20130405
  Receipt Date: 20130405
  Transmission Date: 20140414
  Serious: Yes (Other)
  Sender: FDA-Public Use
  Company Number: US-AMGEN-USASP2013021350

PATIENT
  Sex: Male

DRUGS (3)
  1. ARANESP [Suspect]
     Route: 064
  2. PROGRAF [Concomitant]
  3. IRON [Concomitant]

REACTIONS (3)
  - Premature baby [Recovered/Resolved]
  - Dyspnoea [Recovered/Resolved]
  - Sepsis [Recovered/Resolved]
